FAERS Safety Report 13631415 (Version 1)
Quarter: 2017Q2

REPORT INFORMATION
  Report Type: Spontaneous
  Country: FR (occurrence: FR)
  Receive Date: 20170608
  Receipt Date: 20170608
  Transmission Date: 20170830
  Serious: Yes (Other)
  Sender: FDA-Public Use
  Company Number: PHHY2017FR081374

PATIENT
  Age: 18 Year
  Sex: Female

DRUGS (2)
  1. GRISEOFULVIN. [Suspect]
     Active Substance: GRISEOFULVIN
     Indication: DERMATOPHYTOSIS
     Route: 065
  2. TERBINAFINE. [Suspect]
     Active Substance: TERBINAFINE
     Indication: DERMATOPHYTOSIS
     Route: 065

REACTIONS (3)
  - Dermatophytosis [Unknown]
  - Disease recurrence [Unknown]
  - Inappropriate schedule of drug administration [Unknown]
